FAERS Safety Report 23610752 (Version 1)
Quarter: 2024Q1

REPORT INFORMATION
  Report Type: Spontaneous
  Country: US (occurrence: None)
  Receive Date: 20240307
  Receipt Date: 20240307
  Transmission Date: 20240409
  Serious: Yes (Other)
  Sender: FDA-Public Use
  Company Number: None

PATIENT
  Age: 2 Year
  Sex: Female
  Weight: 13.95 kg

DRUGS (1)
  1. MONTELUKAST [Suspect]
     Active Substance: MONTELUKAST SODIUM
     Indication: Asthma
     Route: 048
     Dates: start: 20240126, end: 20240306

REACTIONS (6)
  - Aggression [None]
  - Emotional disorder [None]
  - Anxiety [None]
  - Anger [None]
  - Crying [None]
  - Screaming [None]

NARRATIVE: CASE EVENT DATE: 20240226
